FAERS Safety Report 5585820-2 (Version None)
Quarter: 2007Q4

REPORT INFORMATION
  Report Type: 
  Country: None (occurrence: None)
  Receive Date: 20071205
  Receipt Date: 20070312
  Transmission Date: 20080405
  Serious: Yes (Life-Threatening, Hospitalization)
  Sender: FDA-Public Use
  Company Number: HQWYE612114MAR07

PATIENT

DRUGS (1)
  1. EFFEXOR XR [Suspect]
     Dosage: 150 MG (FREQUENCY UNSPECIFIED), ORAL ; ESCALATED DOSE RAPIDLY, ORAL
     Route: 048

REACTIONS (1)
  - HYPONATRAEMIA [None]
